FAERS Safety Report 9137748 (Version 1)
Quarter: 2013Q1

REPORT INFORMATION
  Report Type: Spontaneous
  Country: US (occurrence: US)
  Receive Date: 20130304
  Receipt Date: 20130304
  Transmission Date: 20140127
  Serious: No
  Sender: FDA-Public Use
  Company Number: US-ENDO PHARMACEUTICALS INC.-PERC20110033

PATIENT
  Sex: Male

DRUGS (3)
  1. PERCOCET [Suspect]
     Indication: LOWER LIMB FRACTURE
     Dosage: UNK
     Route: 048
  2. OXYCONTIN [Suspect]
     Indication: LOWER LIMB FRACTURE
     Dosage: UNK
     Route: 048
  3. CHANTIX [Concomitant]
     Indication: EX-TOBACCO USER
     Dosage: UNK

REACTIONS (1)
  - Tobacco abuse [Unknown]
